FAERS Safety Report 21800249 (Version 10)
Quarter: 2023Q1

REPORT INFORMATION
  Report Type: Report from Study
  Country: GR (occurrence: None)
  Receive Date: 20221230
  Receipt Date: 20230328
  Transmission Date: 20230417
  Serious: Yes (Death, Hospitalization)
  Sender: FDA-Public Use
  Company Number: GR-ROCHE-3253896

PATIENT
  Age: 72 Year
  Sex: Male
  Weight: 100 kg

DRUGS (20)
  1. TIRAGOLUMAB [Suspect]
     Active Substance: TIRAGOLUMAB
     Indication: Bladder transitional cell carcinoma
     Dosage: START DATE OF MOST RECENT DOSE 600 MG OF STUDY DRUG PRIOR TO AE: 01/DEC/2022
     Route: 042
     Dates: start: 20221108
  2. ATEZOLIZUMAB [Suspect]
     Active Substance: ATEZOLIZUMAB
     Indication: Bladder transitional cell carcinoma
     Dosage: START DATE OF MOST RECENT DOSE OF STUDY DRUG PRIOR TO AE: 01/DEC/2022
     Route: 041
     Dates: start: 20221108
  3. CISPLATIN [Suspect]
     Active Substance: CISPLATIN
     Indication: Bladder transitional cell carcinoma
     Dosage: START DATE OF MOST RECENT DOSE 155 MG OF STUDY DRUG PRIOR TO AE: 01/DEC/2022
     Route: 042
     Dates: start: 20221108
  4. GEMCITABINE [Suspect]
     Active Substance: GEMCITABINE
     Indication: Bladder transitional cell carcinoma
     Dosage: ON DAYS 1 AND 8 OF EACH CYCLE ?START DATE OF MOST RECENT DOSE OF STUDY DRUG PRIOR TO AE: 08/DEC/2022
     Route: 042
     Dates: start: 20221108
  5. MOXONIDINE [Concomitant]
     Active Substance: MOXONIDINE
     Indication: Hypertension
     Route: 048
     Dates: start: 2020
  6. CLOBETASOL PROPIONATE [Concomitant]
     Active Substance: CLOBETASOL PROPIONATE
     Indication: Rash maculo-papular
     Route: 061
     Dates: start: 20221201, end: 20221208
  7. DEXAMETHASONE [Concomitant]
     Active Substance: DEXAMETHASONE
     Route: 042
     Dates: start: 20221108, end: 20221208
  8. DEXAMETHASONE [Concomitant]
     Active Substance: DEXAMETHASONE
     Route: 048
     Dates: start: 20221108, end: 20221201
  9. ONDANSETRON [Concomitant]
     Active Substance: ONDANSETRON
     Indication: Premedication
     Route: 042
     Dates: start: 20221108, end: 20221201
  10. SODIUM CHLORIDE [Concomitant]
     Active Substance: SODIUM CHLORIDE
     Route: 042
     Dates: start: 20221108, end: 20221208
  11. MANNITOL [Concomitant]
     Active Substance: MANNITOL
     Route: 042
     Dates: start: 20221108, end: 20221208
  12. APREPITANT [Concomitant]
     Active Substance: APREPITANT
     Route: 048
     Dates: start: 20221108, end: 20221208
  13. APREPITANT [Concomitant]
     Active Substance: APREPITANT
     Route: 048
     Dates: start: 20221108, end: 20221208
  14. AMIKACIN [Concomitant]
     Active Substance: AMIKACIN
     Route: 042
     Dates: start: 20221218, end: 20221222
  15. AMIKACIN [Concomitant]
     Active Substance: AMIKACIN
     Route: 030
     Dates: start: 20221223, end: 20221227
  16. CEFTAZIDIME [Concomitant]
     Active Substance: CEFTAZIDIME
     Route: 042
     Dates: start: 20221218, end: 20221222
  17. CIPROFLOXACIN [Concomitant]
     Active Substance: CIPROFLOXACIN
     Route: 048
     Dates: start: 20221222, end: 20221227
  18. ISOPROTERENOL [Concomitant]
     Active Substance: ISOPROTERENOL
     Route: 042
     Dates: start: 20221227, end: 20221229
  19. METHYLPREDNISOLONE [Concomitant]
     Active Substance: METHYLPREDNISOLONE
     Route: 042
     Dates: start: 20221228, end: 20221229
  20. HUMAN RED BLOOD CELL [Concomitant]
     Active Substance: HUMAN RED BLOOD CELL
     Indication: Anaemia
     Route: 042
     Dates: start: 20221218, end: 20221222

REACTIONS (1)
  - Myositis [Fatal]

NARRATIVE: CASE EVENT DATE: 20221227
